FAERS Safety Report 14069186 (Version 1)
Quarter: 2017Q4

REPORT INFORMATION
  Report Type: Spontaneous
  Country: GR (occurrence: GR)
  Receive Date: 20171010
  Receipt Date: 20171010
  Transmission Date: 20180321
  Serious: Yes (Hospitalization)
  Sender: FDA-Public Use
  Company Number: GR-BAYER-2017-187606

PATIENT
  Age: 38 Year
  Sex: Female

DRUGS (3)
  1. YASMINELLE [Suspect]
     Active Substance: DROSPIRENONE
     Indication: ENDOMETRIOSIS
     Dosage: UNK
     Route: 048
     Dates: start: 201703, end: 201703
  2. QLAIRA [Suspect]
     Active Substance: DIENOGEST\ESTRADIOL VALERATE
     Indication: ENDOMETRIOSIS
     Route: 048
  3. YASMIN [Suspect]
     Active Substance: DROSPIRENONE\ETHINYL ESTRADIOL
     Indication: ENDOMETRIOSIS
     Dosage: UNK
     Route: 048
     Dates: start: 201701, end: 201702

REACTIONS (8)
  - Dehydration [Recovered/Resolved]
  - Product use in unapproved indication [None]
  - Fluid retention [None]
  - Off label use [None]
  - Product use in unapproved indication [None]
  - Product use in unapproved indication [None]
  - Vomiting [None]
  - Vomiting [Recovered/Resolved]

NARRATIVE: CASE EVENT DATE: 2017
